FAERS Safety Report 7377731-7 (Version None)
Quarter: 2011Q1

REPORT INFORMATION
  Report Type: 
  Country: None (occurrence: None)
  Receive Date: 20110316
  Receipt Date: 20110308
  Transmission Date: 20110831
  Serious: Yes (Other)
  Sender: FDA-Public Use
  Company Number: ACO_22131_2011

PATIENT
  Age: 68 Year
  Sex: Female

DRUGS (15)
  1. SIMVASTATIN [Concomitant]
  2. POTASSIUM CITRATE [Concomitant]
  3. FIBER (FIBRE, DIETARY) [Concomitant]
  4. FISH OIL (FISH OIL) [Concomitant]
  5. SERTRALINE HYDROCHLORIDE [Concomitant]
  6. AMANTADINE HCL [Concomitant]
  7. MULTIVITAMIN [Concomitant]
  8. TIMOLOL MALEATE [Concomitant]
  9. AMPYRA [Suspect]
     Indication: GAIT DISTURBANCE
     Dosage: 10 MG, BID, ORAL
     Route: 048
     Dates: start: 20110202, end: 20110204
  10. AMPYRA [Suspect]
     Indication: GAIT DISTURBANCE
     Dosage: 10 MG, BID, ORAL
     Route: 048
     Dates: start: 20110219, end: 20110305
  11. AMPYRA [Suspect]
     Indication: GAIT DISTURBANCE
     Dosage: 10 MG, BID, ORAL
     Route: 048
     Dates: start: 20110205, end: 20110218
  12. COPAXONE [Concomitant]
  13. NICOTROL [Concomitant]
  14. FENOFIBRATE [Concomitant]
  15. STOOL SOFTENER (DOCUSATE SODIUM) [Concomitant]

REACTIONS (11)
  - MEMORY IMPAIRMENT [None]
  - CONVULSION [None]
  - INAPPROPRIATE SCHEDULE OF DRUG ADMINISTRATION [None]
  - UNRESPONSIVE TO STIMULI [None]
  - FEELING ABNORMAL [None]
  - MULTIPLE SCLEROSIS RELAPSE [None]
  - DISORIENTATION [None]
  - CONFUSIONAL STATE [None]
  - GASTROINTESTINAL VIRAL INFECTION [None]
  - MUSCULOSKELETAL STIFFNESS [None]
  - THERAPEUTIC RESPONSE UNEXPECTED [None]
